FAERS Safety Report 20649026 (Version 1)
Quarter: 2022Q1

REPORT INFORMATION
  Report Type: Spontaneous
  Country: US (occurrence: None)
  Receive Date: 20220328
  Receipt Date: 20220328
  Transmission Date: 20220423
  Serious: Yes (Hospitalization)
  Sender: FDA-Public Use
  Company Number: None

PATIENT
  Sex: Female

DRUGS (6)
  1. AMBRISENTAN [Suspect]
     Active Substance: AMBRISENTAN
     Indication: Pulmonary arterial hypertension
     Dosage: FREQUENCY : DAILY;?
     Route: 048
     Dates: start: 20200722
  2. AMBRISENTAN [Concomitant]
     Active Substance: AMBRISENTAN
  3. MODERNA VAC INJ COVID-19 [Concomitant]
  4. TADALAFIL [Concomitant]
     Active Substance: TADALAFIL
  5. TADALAFIL [Concomitant]
     Active Substance: TADALAFIL
  6. UPTRAVI TAB [Concomitant]

REACTIONS (1)
  - Hospitalisation [None]
